FAERS Safety Report 7412922-8 (Version None)
Quarter: 2011Q2

REPORT INFORMATION
  Report Type: 
  Country: None (occurrence: None)
  Receive Date: 20110413
  Receipt Date: 20110408
  Transmission Date: 20111010
  Serious: Yes (Hospitalization)
  Sender: FDA-Public Use
  Company Number: US-BAYER-201032712NA

PATIENT
  Age: 29 Year
  Sex: Female
  Weight: 70 kg

DRUGS (15)
  1. YASMIN [Suspect]
     Indication: PREMENSTRUAL SYNDROME
     Dosage: UNK
     Dates: start: 20060101, end: 20070101
  2. CLONIDINE [Concomitant]
  3. MOTRIN [Concomitant]
  4. GLUCOPHAGE [Concomitant]
  5. OCELLA [Suspect]
     Indication: CONTRACEPTION
  6. OCELLA [Suspect]
     Indication: MENSTRUAL DISORDER
  7. GLIPIZIDE [Concomitant]
     Dates: start: 20070101
  8. CONTRACEPTIVES NOS [Concomitant]
  9. ENARPLIE [Concomitant]
     Dates: start: 20080101
  10. YASMIN [Suspect]
     Indication: MENSTRUAL DISORDER
     Dosage: UNK
     Route: 048
     Dates: start: 20080101, end: 20080701
  11. VASOTEC [Concomitant]
     Dates: start: 20070101
  12. ENALAPRIL MALEATE [Concomitant]
  13. HYDROCHLOROTHIAZIDE [Concomitant]
  14. YASMIN [Suspect]
     Indication: CONTRACEPTION
     Dosage: UNK
     Route: 048
     Dates: start: 20060101, end: 20061101
  15. OCELLA [Suspect]
     Indication: PREMENSTRUAL SYNDROME
     Route: 048
     Dates: start: 20080701, end: 20090315

REACTIONS (11)
  - VOMITING [None]
  - CHOLELITHIASIS [None]
  - NERVOUSNESS [None]
  - EMOTIONAL DISTRESS [None]
  - CHOLECYSTITIS CHRONIC [None]
  - ABDOMINAL PAIN [None]
  - DECREASED APPETITE [None]
  - DEPRESSION [None]
  - FEAR OF DEATH [None]
  - INJURY [None]
  - BILIARY COLIC [None]
